FAERS Safety Report 16373688 (Version 3)
Quarter: 2020Q2

REPORT INFORMATION
  Report Type: Spontaneous
  Country: US (occurrence: US)
  Receive Date: 20190530
  Receipt Date: 20200407
  Transmission Date: 20200713
  Serious: No
  Sender: FDA-Public Use
  Company Number: US-SA-2019SA147868

PATIENT
  Age: 78 Year
  Sex: Female

DRUGS (18)
  1. CELEBREX [Concomitant]
     Active Substance: CELECOXIB
  2. FIBER [Concomitant]
     Active Substance: PSYLLIUM HUSK
  3. CENTRUM PLUS [Concomitant]
     Active Substance: VITAMINS
  4. ELIDEL [Concomitant]
     Active Substance: PIMECROLIMUS
  5. VITAMIN D [VITAMIN D NOS] [Concomitant]
     Active Substance: VITAMIN D NOS
  6. CALCIUM [Concomitant]
     Active Substance: CALCIUM
  7. VITAMIN B COMPLEX [Concomitant]
     Active Substance: CYANOCOBALAMIN\DEXPANTHENOL\NIACINAMIDE\PYRIDOXINE HYDROCHLORIDE\RIBOFLAVIN 5^-PHOSPHATE SODIUM\THIAMINE HYDROCHLORIDE\VITAMIN B COMPLEX
  8. LORATADINE. [Concomitant]
     Active Substance: LORATADINE
  9. PRESERVISION AREDS [Concomitant]
     Active Substance: MINERALS\VITAMINS
  10. TUMORCIDE [Concomitant]
  11. ESZOPICLONE. [Concomitant]
     Active Substance: ESZOPICLONE
  12. MIRVASO [Concomitant]
     Active Substance: BRIMONIDINE TARTRATE
  13. FISH OIL [Concomitant]
     Active Substance: FISH OIL
  14. MONTELUKAST SODIUM. [Concomitant]
     Active Substance: MONTELUKAST SODIUM
  15. ATORVASTATIN CALCIUM. [Concomitant]
     Active Substance: ATORVASTATIN CALCIUM
  16. IPRATROPIUM BROMIDE. [Concomitant]
     Active Substance: IPRATROPIUM BROMIDE
  17. DUPIXENT [Suspect]
     Active Substance: DUPILUMAB
     Indication: DERMATITIS ATOPIC
     Dosage: 300 MG, QOW
     Route: 058
     Dates: start: 20181206
  18. PROBIOTIC ACIDOPHILUS [LACTOBACILLUS ACIDOPHILUS] [Concomitant]

REACTIONS (2)
  - Visual impairment [Unknown]
  - Muscle spasms [Unknown]

NARRATIVE: CASE EVENT DATE: 20200303
